FAERS Safety Report 5147918-2 (Version None)
Quarter: 2006Q4

REPORT INFORMATION
  Report Type: 
  Country: None (occurrence: None)
  Receive Date: 20061110
  Receipt Date: 20061017
  Transmission Date: 20070319
  Serious: Yes (Other)
  Sender: FDA-Public Use
  Company Number: PHBS2006KR16130

PATIENT
  Age: 8 Year
  Sex: Male

DRUGS (1)
  1. ELIDEL [Suspect]
     Indication: BLEPHARITIS
     Dosage: UNK, UNK
     Route: 061

REACTIONS (4)
  - EYELID EXFOLIATION [None]
  - RASH ERYTHEMATOUS [None]
  - TINEA INFECTION [None]
  - TRICHOPHYTON INFECTION [None]
